FAERS Safety Report 9220744 (Version 1)
Quarter: 2013Q2

REPORT INFORMATION
  Report Type: Report from Study
  Country: JP (occurrence: JP)
  Receive Date: 20130409
  Receipt Date: 20130409
  Transmission Date: 20140414
  Serious: Yes (Hospitalization)
  Sender: FDA-Public Use
  Company Number: JP-009507513-1304JPN003107

PATIENT
  Age: 56 Year
  Sex: Female
  Weight: 46 kg

DRUGS (10)
  1. PEGINTRON [Suspect]
     Indication: CHRONIC HEPATITIS C
     Dosage: 1.5 MICROGRAM PER KILOGRAM, QW
     Route: 058
     Dates: start: 20120925, end: 20121113
  2. PEGINTRON [Suspect]
     Dosage: 1.5 MICROGRAM PER KILOGRAM, QW
     Route: 058
     Dates: start: 20121127, end: 20121204
  3. PEGINTRON [Suspect]
     Dosage: 1.5 MICROGRAM PER KILOGRAM, QW
     Route: 058
     Dates: start: 20121220, end: 20130131
  4. PEGINTRON [Suspect]
     Dosage: 1.0 MICROGRAM PER KILOGRAM, QW
     Route: 058
     Dates: start: 20130214, end: 20130307
  5. REBETOL [Suspect]
     Indication: CHRONIC HEPATITIS C
     Dosage: 400 MG, QD
     Route: 048
     Dates: start: 20120925, end: 20121008
  6. REBETOL [Suspect]
     Dosage: 200 MG, QD
     Route: 048
     Dates: start: 20121009, end: 20130116
  7. REBETOL [Suspect]
     Dosage: 400 MG, QD
     Route: 048
     Dates: start: 20130117, end: 20130313
  8. TELAVIC [Suspect]
     Indication: CHRONIC HEPATITIS C
     Dosage: 1500MG,QD
     Route: 048
     Dates: start: 20120925
  9. ADALAT CR [Concomitant]
     Dosage: 20 MG, QD, FORMULATION:POR
     Route: 048
  10. OMEPRAL [Concomitant]
     Dosage: 10 MG, QD, FORMULATION:POR
     Route: 048

REACTIONS (1)
  - Depressive symptom [Recovering/Resolving]
